FAERS Safety Report 23265993 (Version 1)
Quarter: 2023Q4

REPORT INFORMATION
  Report Type: Spontaneous
  Country: DE (occurrence: DE)
  Receive Date: 20231206
  Receipt Date: 20231206
  Transmission Date: 20240109
  Serious: Yes (Hospitalization, Other)
  Sender: FDA-Public Use
  Company Number: None

PATIENT
  Age: 44 Year
  Sex: Male
  Weight: 70 kg

DRUGS (4)
  1. ACYCLOVIR SODIUM [Suspect]
     Active Substance: ACYCLOVIR SODIUM
     Indication: Herpes zoster
     Dosage: 1 DOSAGE FORM, Q8H
     Route: 042
     Dates: start: 20230911, end: 20230913
  2. BRIVUDINE [Concomitant]
     Active Substance: BRIVUDINE
     Indication: Herpes zoster
     Dosage: 125 MILLIGRAM, QD
     Route: 048
     Dates: start: 20230911, end: 20230917
  3. ACETAMINOPHEN [Concomitant]
     Active Substance: ACETAMINOPHEN
     Indication: Analgesic therapy
     Dosage: 500 MILLIGRAM, Q8H
     Route: 048
  4. PREGABALIN [Concomitant]
     Active Substance: PREGABALIN
     Indication: Product used for unknown indication
     Dosage: 25 MILLIGRAM, Q12H
     Route: 048

REACTIONS (2)
  - Acute kidney injury [Recovering/Resolving]
  - Blood creatine decreased [Recovering/Resolving]

NARRATIVE: CASE EVENT DATE: 20230913
